FAERS Safety Report 19839983 (Version 1)
Quarter: 2021Q3

REPORT INFORMATION
  Report Type: Spontaneous
  Country: US (occurrence: US)
  Receive Date: 20210916
  Receipt Date: 20210916
  Transmission Date: 20211014
  Serious: Yes (Hospitalization)
  Sender: FDA-Public Use
  Company Number: None

PATIENT
  Age: 66 Year
  Sex: Female
  Weight: 63.1 kg

DRUGS (1)
  1. PACLITAXEL 50 ML VIAL [Suspect]
     Active Substance: PACLITAXEL
     Indication: LUNG NEOPLASM MALIGNANT
     Dosage: OTHER FREQUENCY:EVERY 3 WEEKS;?
     Route: 042
     Dates: start: 20210820, end: 20210910

REACTIONS (5)
  - Chest pain [None]
  - Dyspnoea [None]
  - Hot flush [None]
  - Blood pressure decreased [None]
  - Infusion related reaction [None]

NARRATIVE: CASE EVENT DATE: 20210910
